FAERS Safety Report 10552363 (Version 1)
Quarter: 2014Q4

REPORT INFORMATION
  Report Type: Spontaneous
  Country: US (occurrence: US)
  Receive Date: 20141029
  Receipt Date: 20141029
  Transmission Date: 20150529
  Serious: No
  Sender: FDA-Public Use
  Company Number: US-ELI_LILLY_AND_COMPANY-US201410003962

PATIENT
  Sex: Female

DRUGS (2)
  1. ALIMTA [Suspect]
     Active Substance: PEMETREXED DISODIUM
     Indication: ACCIDENTAL EXPOSURE TO PRODUCT
     Dosage: 1200 MG, SINGLE
     Route: 061
     Dates: start: 20140929, end: 20140929
  2. ALIMTA [Suspect]
     Active Substance: PEMETREXED DISODIUM
     Dosage: 1200 MG, SINGLE
     Route: 061
     Dates: start: 20140929, end: 20140929

REACTIONS (3)
  - Peripheral swelling [Recovered/Resolved]
  - Accidental exposure to product [Recovered/Resolved]
  - Nausea [Recovered/Resolved]

NARRATIVE: CASE EVENT DATE: 20140929
